FAERS Safety Report 8123283-3 (Version None)
Quarter: 2012Q1

REPORT INFORMATION
  Report Type: 
  Country: None (occurrence: None)
  Receive Date: 20120208
  Receipt Date: 20120202
  Transmission Date: 20120608
  Serious: No
  Sender: FDA-Public Use
  Company Number: US-BAYER-2012-012646

PATIENT
  Sex: Female

DRUGS (6)
  1. VITAMIN B COMPLEX CAP [Concomitant]
  2. ASPIRIN [Suspect]
     Indication: ISCHAEMIC HEART DISEASE PROPHYLAXIS
     Dosage: 81 MG, QD
     Route: 048
     Dates: start: 20120101
  3. ANTIHYPERTENSIVES [Concomitant]
  4. ASCORBIC ACID [Concomitant]
  5. ASPIRIN [Suspect]
     Dosage: 162 MG (2 TABLETS) QD
     Route: 048
  6. VITAMIN E [Concomitant]

REACTIONS (1)
  - INSOMNIA [None]
